FAERS Safety Report 7098210-0 (Version None)
Quarter: 2010Q4

REPORT INFORMATION
  Report Type: 
  Country: None (occurrence: None)
  Receive Date: 20101112
  Receipt Date: 20101103
  Transmission Date: 20110411
  Serious: Yes (Hospitalization)
  Sender: FDA-Public Use
  Company Number: US-ASTRAZENECA-2010SE52119

PATIENT
  Age: 18 Year
  Sex: Female

DRUGS (2)
  1. SEROQUEL XR [Suspect]
     Route: 048
     Dates: start: 20100101
  2. WELLBUTRIN SR [Concomitant]

REACTIONS (4)
  - BIPOLAR DISORDER [None]
  - DRUG DOSE OMISSION [None]
  - FATIGUE [None]
  - PSYCHOTIC DISORDER [None]
